FAERS Safety Report 21514700 (Version 1)
Quarter: 2022Q4

REPORT INFORMATION
  Report Type: Spontaneous
  Country: US (occurrence: US)
  Receive Date: 20221027
  Receipt Date: 20221027
  Transmission Date: 20230113
  Serious: Yes (Other)
  Sender: FDA-Public Use
  Company Number: US-PFIZER INC-PV202200082839

PATIENT
  Age: 71 Year
  Sex: Male

DRUGS (1)
  1. CEFTAZIDIME [Suspect]
     Active Substance: CEFTAZIDIME
     Indication: Cellulitis
     Dosage: 3 G, 2X/DAY
     Route: 042

REACTIONS (1)
  - Toxic encephalopathy [Recovered/Resolved]
